FAERS Safety Report 7502392-3 (Version None)
Quarter: 2011Q2

REPORT INFORMATION
  Report Type: 
  Country: None (occurrence: None)
  Receive Date: 20110525
  Receipt Date: 20110510
  Transmission Date: 20111010
  Serious: Yes (Hospitalization)
  Sender: FDA-Public Use
  Company Number: US-BAYER-201038512NA

PATIENT
  Age: 32 Year
  Sex: Female
  Weight: 136 kg

DRUGS (1)
  1. YASMIN [Suspect]
     Indication: PRODUCT USED FOR UNKNOWN INDICATION
     Dosage: UNK
     Dates: start: 20040101

REACTIONS (4)
  - GALLBLADDER DISORDER [None]
  - PANCREATITIS [None]
  - CHEST PAIN [None]
  - DYSPNOEA [None]
